FAERS Safety Report 12211783 (Version 1)
Quarter: 2016Q1

REPORT INFORMATION
  Report Type: Spontaneous
  Country: AU (occurrence: AU)
  Receive Date: 20160325
  Receipt Date: 20160325
  Transmission Date: 20160526
  Serious: Yes (Other)
  Sender: FDA-Public Use
  Company Number: AU-ELI_LILLY_AND_COMPANY-AU201603006924

PATIENT
  Age: 66 Year
  Sex: Female

DRUGS (3)
  1. SOLIAN [Suspect]
     Active Substance: AMISULPRIDE
     Indication: SCHIZOPHRENIA
     Dosage: UNK, UNKNOWN
     Route: 065
  2. HALDOL [Suspect]
     Active Substance: HALOPERIDOL
     Indication: SCHIZOPHRENIA
     Dosage: UNK, UNKNOWN
     Route: 065
  3. ZYPREXA [Suspect]
     Active Substance: OLANZAPINE
     Indication: SCHIZOPHRENIA
     Dosage: 10 MG, BID
     Route: 065

REACTIONS (18)
  - Slow speech [Unknown]
  - Headache [Unknown]
  - Chest pain [Unknown]
  - Abdominal distension [Unknown]
  - Hepatomegaly [Unknown]
  - Disorientation [Unknown]
  - Arrhythmia [Unknown]
  - Dyspnoea [Unknown]
  - Oedema peripheral [Unknown]
  - Hypersensitivity [Unknown]
  - Brain injury [Unknown]
  - Dry throat [Unknown]
  - Obesity [Unknown]
  - Constipation [Unknown]
  - Dry mouth [Unknown]
  - Weight increased [Recovering/Resolving]
  - Pain in extremity [Unknown]
  - Haemorrhoids [Unknown]
